FAERS Safety Report 5087793-8 (Version None)
Quarter: 2006Q3

REPORT INFORMATION
  Report Type: 
  Country: None (occurrence: None)
  Receive Date: 20060824
  Receipt Date: 20060818
  Transmission Date: 20061208
  Serious: Yes (Other)
  Sender: FDA-Public Use
  Company Number: JP-ROCHE-459997

PATIENT
  Age: 55 Year
  Sex: Male

DRUGS (6)
  1. PANALDINE [Suspect]
     Indication: THROMBOSIS PROPHYLAXIS
     Dosage: OTHER INDICATIONS STENT PLACEMENT AND ACUTE MYOCARDIAL INFARCTION.
     Route: 048
     Dates: start: 20060710
  2. ARTIST [Suspect]
     Indication: MYOCARDIAL INFARCTION
     Route: 048
     Dates: start: 20060712, end: 20060727
  3. OMEPRAZOLE [Suspect]
     Indication: GASTRITIS
     Route: 048
     Dates: start: 20060710, end: 20060802
  4. LIPITOR [Suspect]
     Indication: HYPERLIPIDAEMIA
     Route: 048
     Dates: start: 20060712, end: 20060727
  5. NU-LOTAN [Suspect]
     Indication: MYOCARDIAL INFARCTION
     Route: 048
     Dates: start: 20060712, end: 20060727
  6. 8-HOUR BAYER [Suspect]
     Indication: MYOCARDIAL INFARCTION
     Route: 048

REACTIONS (4)
  - CHEST PAIN [None]
  - PLATELET COUNT INCREASED [None]
  - STENT OCCLUSION [None]
  - THROMBOSIS IN DEVICE [None]
